FAERS Safety Report 19070194 (Version 1)
Quarter: 2021Q1

REPORT INFORMATION
  Report Type: Spontaneous
  Country: ES (occurrence: ES)
  Receive Date: 20210329
  Receipt Date: 20210329
  Transmission Date: 20210420
  Serious: Yes (Hospitalization)
  Sender: FDA-Public Use
  Company Number: ES-FRESENIUS KABI-FK202103199

PATIENT
  Age: 64 Year
  Sex: Female

DRUGS (3)
  1. BORTEZOMIB (MANUFACTURER UNKNOWN) [Suspect]
     Active Substance: BORTEZOMIB
     Indication: ACQUIRED VON WILLEBRAND^S DISEASE
     Route: 065
  2. RITUXIMAB. [Suspect]
     Active Substance: RITUXIMAB
     Indication: ACQUIRED VON WILLEBRAND^S DISEASE
     Route: 065
  3. DEXAMETHASONE INJECTION (MANUFACTURER UNKNOWN) [Suspect]
     Active Substance: DEXAMETHASONE
     Indication: ACQUIRED VON WILLEBRAND^S DISEASE
     Route: 065

REACTIONS (2)
  - Constipation [Unknown]
  - Abdominal wall haematoma [Recovered/Resolved]
